FAERS Safety Report 7901681-8 (Version None)
Quarter: 2011Q4

REPORT INFORMATION
  Report Type: 
  Country: None (occurrence: None)
  Receive Date: 20111108
  Receipt Date: 20111102
  Transmission Date: 20120403
  Serious: Yes (Disabling, Other)
  Sender: FDA-Public Use
  Company Number: GB-PFIZER INC-2011268906

PATIENT
  Age: 68 Year
  Sex: Male
  Weight: 82 kg

DRUGS (8)
  1. AMLODIPINE [Concomitant]
     Dosage: UNK
     Dates: start: 20110614
  2. FUROSEMIDE [Concomitant]
     Dosage: UNK
     Dates: start: 20110713
  3. CANDESARTAN [Concomitant]
     Dosage: UNK
     Dates: start: 20110809
  4. ENZIRA [Concomitant]
     Dosage: 0.5 ML
     Dates: start: 20110922
  5. PARACETAMOL [Concomitant]
     Dosage: UNK
     Dates: start: 20110718
  6. GABAPENTIN [Suspect]
     Dosage: UNK
     Dates: start: 20110922
  7. TRAMADOL [Concomitant]
     Dosage: UNK
     Dates: start: 20110614
  8. SIMVASTATIN [Concomitant]
     Dosage: UNK
     Dates: start: 20110809

REACTIONS (3)
  - HALLUCINATION [None]
  - ANXIETY [None]
  - COUGH [None]
